FAERS Safety Report 21234441 (Version 4)
Quarter: 2022Q3

REPORT INFORMATION
  Report Type: Spontaneous
  Country: US (occurrence: US)
  Receive Date: 20220820
  Receipt Date: 20220902
  Transmission Date: 20221027
  Serious: Yes (Hospitalization)
  Sender: FDA-Public Use
  Company Number: US-UNITED THERAPEUTICS-UNT-2022-018478

PATIENT
  Age: 35 Year
  Sex: Female

DRUGS (3)
  1. REMODULIN [Suspect]
     Active Substance: TREPROSTINIL
     Indication: Pulmonary arterial hypertension
     Dosage: UNK, CONTINUING
     Route: 041
     Dates: start: 20190615
  2. REMODULIN [Suspect]
     Active Substance: TREPROSTINIL
     Dosage: 0.074 ?G/KG, CONTINUING (PUMP RATE 35ML/24HR)
     Route: 041
  3. REMODULIN [Suspect]
     Active Substance: TREPROSTINIL
     Dosage: 0.076 ?G/KG, CONTINUING
     Route: 041

REACTIONS (7)
  - Device issue [Unknown]
  - Device kink [Recovered/Resolved]
  - Device failure [Unknown]
  - Device leakage [Recovered/Resolved]
  - Dyspnoea [Unknown]
  - Oxygen consumption increased [Unknown]
  - Flushing [Unknown]

NARRATIVE: CASE EVENT DATE: 20220801
